FAERS Safety Report 16414096 (Version 1)
Quarter: 2019Q3

REPORT INFORMATION
  Report Type: Spontaneous
  Country: US (occurrence: US)
  Receive Date: 20190609
  Receipt Date: 20190609
  Transmission Date: 20191004
  Serious: Yes (Hospitalization)
  Sender: FDA-Public Use
  Company Number: None

PATIENT
  Age: 64 Year
  Sex: Female
  Weight: 90 kg

DRUGS (12)
  1. GARBAPENTIN [Concomitant]
  2. SINEMET [Concomitant]
     Active Substance: CARBIDOPA\LEVODOPA
  3. MEDICAL MARIJUANA [Concomitant]
     Active Substance: CANNABIS SATIVA SUBSP. INDICA TOP
  4. ZANTAC [Concomitant]
     Active Substance: RANITIDINE HYDROCHLORIDE
  5. METFORMIN [Concomitant]
     Active Substance: METFORMIN HYDROCHLORIDE
  6. ZYRTEC [Concomitant]
     Active Substance: CETIRIZINE HYDROCHLORIDE
  7. ORPHENADRINE [Concomitant]
     Active Substance: ORPHENADRINE
  8. LOVENOX [Suspect]
     Active Substance: ENOXAPARIN SODIUM
     Indication: ANTICOAGULANT THERAPY
  9. LEVOTHYROXIN [Concomitant]
     Active Substance: LEVOTHYROXINE
  10. SINGULAIR [Concomitant]
     Active Substance: MONTELUKAST SODIUM
  11. LISINOPRIL. [Concomitant]
     Active Substance: LISINOPRIL
  12. MULTIVITAMIN [Concomitant]
     Active Substance: VITAMINS

REACTIONS (1)
  - Hallucination [None]

NARRATIVE: CASE EVENT DATE: 20181110
